FAERS Safety Report 16716283 (Version 1)
Quarter: 2019Q4

REPORT INFORMATION
  Report Type: Spontaneous
  Country: US (occurrence: US)
  Receive Date: 20190818
  Receipt Date: 20190818
  Transmission Date: 20200122
  Serious: Yes (Life-Threatening)
  Sender: FDA-Public Use
  Company Number: None

PATIENT
  Age: 39 Year
  Sex: Female
  Weight: 110.25 kg

DRUGS (13)
  1. AJOVY [Suspect]
     Active Substance: FREMANEZUMAB-VFRM
     Indication: MIGRAINE
     Dosage: ?          QUANTITY:1 INJECTION(S);OTHER FREQUENCY:EVERY MONTH;OTHER ROUTE:INJECTED INTO THIGH?
     Dates: start: 20190523
  2. KETEROLAC [Concomitant]
  3. CETIRIZINE [Concomitant]
     Active Substance: CETIRIZINE HYDROCHLORIDE
  4. PROPANALOL [Concomitant]
  5. OLOPATADINE. [Concomitant]
     Active Substance: OLOPATADINE
  6. ELETRIPTAN. [Concomitant]
     Active Substance: ELETRIPTAN
  7. PROAIR HFA [Concomitant]
     Active Substance: ALBUTEROL SULFATE
  8. BENADRYL [Concomitant]
     Active Substance: DIPHENHYDRAMINE HYDROCHLORIDE
  9. BUSPIRONE [Concomitant]
     Active Substance: BUSPIRONE HYDROCHLORIDE
  10. PROCHLORPERAZINE. [Concomitant]
     Active Substance: PROCHLORPERAZINE
  11. BUDESONIDE. [Concomitant]
     Active Substance: BUDESONIDE
  12. NARATRIPTAN [Concomitant]
     Active Substance: NARATRIPTAN HYDROCHLORIDE
  13. MAGNESIUM OXIDE. [Concomitant]
     Active Substance: MAGNESIUM OXIDE

REACTIONS (15)
  - Anaphylactic reaction [None]
  - Aphasia [None]
  - Deafness [None]
  - Diarrhoea [None]
  - Tongue blistering [None]
  - Fatigue [None]
  - Anxiety [None]
  - Glossitis [None]
  - Alopecia [None]
  - Abdominal distension [None]
  - Weight increased [None]
  - Blindness transient [None]
  - Gastrooesophageal reflux disease [None]
  - Increased appetite [None]
  - Confusional state [None]

NARRATIVE: CASE EVENT DATE: 20190723
